FAERS Safety Report 24070553 (Version 1)
Quarter: 2024Q3

REPORT INFORMATION
  Report Type: Report from Study
  Country: CU (occurrence: CU)
  Receive Date: 20240710
  Receipt Date: 20240710
  Transmission Date: 20241016
  Serious: No
  Sender: ROCHE
  Company Number: CU-ROCHE-3200408

PATIENT
  Age: 64 Year
  Sex: Female
  Weight: 62.0 kg

DRUGS (12)
  1. ALECTINIB [Suspect]
     Active Substance: ALECTINIB
     Indication: Lung cancer metastatic
     Route: 048
     Dates: start: 20210817
  2. ALECTINIB [Suspect]
     Active Substance: ALECTINIB
     Route: 048
     Dates: start: 20210213
  3. CEFTRIAXONE [Concomitant]
     Active Substance: CEFTRIAXONE\CEFTRIAXONE SODIUM
     Indication: Antibiotic therapy
     Route: 042
     Dates: start: 20221019, end: 20221028
  4. AMINOPHYLLINE [Concomitant]
     Active Substance: AMINOPHYLLINE
     Dosage: 750 AMPULE
     Route: 042
     Dates: start: 20221019, end: 20221020
  5. METOCLOPRAMIDE [Concomitant]
     Active Substance: METOCLOPRAMIDE
     Dosage: ANTIEMETIC AND PROKINETIC
     Route: 048
     Dates: start: 20221103, end: 20221116
  6. ISOSORBIDE DINITRATE [Concomitant]
     Active Substance: ISOSORBIDE DINITRATE
     Dosage: ANTI ANGINOSO
     Route: 048
     Dates: start: 20221110
  7. RANITIDINE [Concomitant]
     Active Substance: RANITIDINE
     Dosage: H ANTAGONISTS
     Route: 042
     Dates: start: 20221112, end: 20221116
  8. DIPYRONE [Concomitant]
     Active Substance: DIPYRONE
     Dosage: ANALGESIC
     Route: 030
     Dates: start: 20221031, end: 20221116
  9. DIPYRONE [Concomitant]
     Active Substance: DIPYRONE
     Dosage: DIURETIC
     Route: 042
     Dates: start: 20221102, end: 20221116
  10. ALBUTEROL [Concomitant]
     Active Substance: ALBUTEROL
     Route: 055
     Dates: start: 20221019, end: 20221116
  11. ACETYLCYSTEINE [Concomitant]
     Active Substance: ACETYLCYSTEINE
     Route: 055
     Dates: start: 20221019, end: 20221116
  12. ZOLEDRONIC ACID [Concomitant]
     Active Substance: ZOLEDRONIC ACID
     Route: 042
     Dates: start: 20210730, end: 20221014

REACTIONS (1)
  - Cough [Not Recovered/Not Resolved]

NARRATIVE: CASE EVENT DATE: 20220621
